FAERS Safety Report 6709391-X (Version None)
Quarter: 2010Q2

REPORT INFORMATION
  Report Type: 
  Country: None (occurrence: None)
  Receive Date: 20100504
  Receipt Date: 20100426
  Transmission Date: 20101027
  Serious: Yes (Death)
  Sender: FDA-Public Use
  Company Number: PHHY2009PH60935

PATIENT

DRUGS (1)
  1. ACLASTA [Suspect]
     Dosage: 5MG/100ML SOLUTION FOR INFUSION
     Dates: start: 20080506

REACTIONS (1)
  - DEATH [None]
